FAERS Safety Report 7507910-7 (Version None)
Quarter: 2011Q2

REPORT INFORMATION
  Report Type: 
  Country: None (occurrence: None)
  Receive Date: 20110527
  Receipt Date: 20110519
  Transmission Date: 20111010
  Serious: Yes (Other)
  Sender: FDA-Public Use
  Company Number: US-BRISTOL-MYERS SQUIBB COMPANY-15760341

PATIENT
  Sex: Female

DRUGS (1)
  1. MEGACE [Suspect]
     Indication: IRRITABLE BOWEL SYNDROME
     Dates: end: 20110101

REACTIONS (4)
  - PHARYNGEAL OEDEMA [None]
  - HOT FLUSH [None]
  - SWOLLEN TONGUE [None]
  - WEIGHT INCREASED [None]
